FAERS Safety Report 5268878-X (Version None)
Quarter: 2007Q1

REPORT INFORMATION
  Report Type: 
  Country: None (occurrence: None)
  Receive Date: 20070319
  Receipt Date: 20070308
  Transmission Date: 20070707
  Serious: Yes (Other)
  Sender: FDA-Public Use
  Company Number: PHEH2007US01668

PATIENT
  Age: 56 Year
  Sex: Female

DRUGS (3)
  1. ZOMETA [Suspect]
     Indication: BREAST CANCER METASTATIC
     Dosage: EVERY MONTH
     Dates: start: 20020101, end: 20040101
  2. AREDIA [Suspect]
     Indication: BREAST CANCER METASTATIC
     Dosage: EVERY MONTH
     Dates: start: 20040101, end: 20060601
  3. CHEMOTHERAPEUTICS NOS [Concomitant]

REACTIONS (10)
  - BONE DISORDER [None]
  - EAR PAIN [None]
  - ORAL SOFT TISSUE DISORDER [None]
  - OSTEONECROSIS [None]
  - PAIN [None]
  - PAIN IN JAW [None]
  - PHARYNGOLARYNGEAL PAIN [None]
  - RENAL IMPAIRMENT [None]
  - RIB FRACTURE [None]
  - SNEEZING [None]
